FAERS Safety Report 4459849-1 (Version None)
Quarter: 2004Q3

REPORT INFORMATION
  Report Type: 
  Country: None (occurrence: None)
  Receive Date: 20040928
  Receipt Date: 20040423
  Transmission Date: 20050211
  Serious: No
  Sender: FDA-Public Use
  Company Number: US-BRISTOL-MYERS SQUIBB COMPANY-12569182

PATIENT
  Age: 1 Year
  Sex: Male
  Weight: 11 kg

DRUGS (3)
  1. TRIMOX [Suspect]
     Indication: EAR INFECTION
     Dosage: STOPPED ON 19-APR-2004 THEN RESTARTED ON 21-APR-2004
     Route: 048
     Dates: start: 20040305
  2. PREVACID [Concomitant]
  3. BENADRYL [Concomitant]

REACTIONS (2)
  - INSOMNIA [None]
  - RESTLESSNESS [None]
